FAERS Safety Report 18548258 (Version 1)
Quarter: 2020Q4

REPORT INFORMATION
  Report Type: Spontaneous
  Country: CA (occurrence: CA)
  Receive Date: 20201126
  Receipt Date: 20201126
  Transmission Date: 20210114
  Serious: Yes (Other)
  Sender: FDA-Public Use
  Company Number: CA-LUPIN PHARMACEUTICALS INC.-2020-09475

PATIENT
  Age: 7 Year
  Sex: Female

DRUGS (2)
  1. VORICONAZOLE. [Suspect]
     Active Substance: VORICONAZOLE
     Indication: BRONCHOPULMONARY ASPERGILLOSIS
     Dosage: 11 MILLIGRAM/KILOGRAM, TID
     Route: 042
  2. VORICONAZOLE. [Suspect]
     Active Substance: VORICONAZOLE
     Indication: CEREBRAL ASPERGILLOSIS
     Dosage: 11 MILLIGRAM/KILOGRAM, TID
     Route: 048

REACTIONS (2)
  - Fluorosis [Recovering/Resolving]
  - Bone disorder [Recovering/Resolving]
